FAERS Safety Report 24532751 (Version 1)
Quarter: 2024Q4

REPORT INFORMATION
  Report Type: Spontaneous
  Country: GB (occurrence: GB)
  Receive Date: 20241022
  Receipt Date: 20241022
  Transmission Date: 20250115
  Serious: Yes (Other)
  Sender: TEVA
  Company Number: None

PATIENT
  Age: 75 Year
  Sex: Female

DRUGS (25)
  1. SPIRONOLACTONE [Suspect]
     Active Substance: SPIRONOLACTONE
     Dosage: ONE TO BE TAKEN EACH MORNING 7 DAYS
     Route: 065
  2. IPRATROPIUM [Concomitant]
     Active Substance: IPRATROPIUM
     Dosage: 500MCG NEBS VIA AIR UP TO QDS PRN
  3. PRASUGREL [Concomitant]
     Active Substance: PRASUGREL
     Dosage: 5 MG, ONE TO BE TAKEN EACH DAY (THIS REPLACES CLOPIDOGREL) 7?DAY
  4. NICORANDIL [Concomitant]
     Active Substance: NICORANDIL
     Dosage: 10 MG, ONE TO BE TAKEN TWICE A DAY 7 DAYS
  5. MIRTAZAPINE [Concomitant]
     Active Substance: MIRTAZAPINE
     Dosage: 15 MG, ONE TO BE TAKEN AT NIGHT 7 DAYS
  6. Felodipine + Ramipril [Concomitant]
  7. ALBUTEROL [Concomitant]
     Active Substance: ALBUTEROL
     Dosage: 2.5MG NEBS VIA AIR UP TO QDS PRN
  8. ISOSORBIDE MONONITRATE [Concomitant]
     Active Substance: ISOSORBIDE MONONITRATE
     Dosage: 60 MG, TAKE 2 TABLETS (TOTAL 120 MG) ONCE A DAY 7 DAYS
  9. Macrogol compound [Concomitant]
     Dosage: NPF SUGAR FREE 1-2 SACHETS TO BE TAKEN EACH DAY IF NEEDED
     Route: 048
  10. THEOPHYLLINE ANHYDROUS [Concomitant]
     Active Substance: THEOPHYLLINE ANHYDROUS
     Dosage: 200 MG, ONE TO BE TAKEN TWICE A DAY (DOSE REDUCED BY HOSPITAL 27 / 06 / 2023 ) 7 DAYS
  11. RANOLAZINE [Concomitant]
     Active Substance: RANOLAZINE
     Dosage: 750 MG, ONE TO BE TAKEN TWICE A DAY 7 DAYS
  12. ATORVASTATIN [Concomitant]
     Active Substance: ATORVASTATIN
     Dosage: 80 MG, TAKE ONE AT NIGHT 7 DAYS
  13. RAMIPRIL [Suspect]
     Active Substance: RAMIPRIL
     Dosage: ONE TO BE TAKEN EACH DAY IN THE MORNING 7 DAYS
     Route: 065
  14. NEBIVOLOL [Concomitant]
     Active Substance: NEBIVOLOL
     Dosage: 5 MG, ONE TO BE TAKEN IN THE MORNING AND ONE AT TEATIME 7 DAYS
  15. BECLOMETHASONE DIPROPIONATE\FORMOTEROL FUMARATE\GLYCOPYRROLATE [Concomitant]
     Active Substance: BECLOMETHASONE DIPROPIONATE\FORMOTEROL FUMARATE\GLYCOPYRROLATE
     Dosage: 172 / 5 / 9 MICROGRAMS / DOSE INHALER TWO PUFFS TO BE INHALED TWICE A DAY
     Route: 055
  16. DICLOFENAC DIETHYLAMINE [Concomitant]
     Active Substance: DICLOFENAC DIETHYLAMINE
     Dosage: TIME INTERVAL: 0.33333333 DAYS: 1.16%, APPLY TO THE AFFECTED AREA (S) TDS
  17. NITROGLYCERIN [Concomitant]
     Active Substance: NITROGLYCERIN
     Indication: Chest pain
     Dosage: 400 MICROGRAMS / DOSE PUMP, ONE OR TWO DOSES WHEN YOU HAVE CHEST PAIN-CALL AN AMBULANCE IF YOU ST...
     Route: 060
  18. BUTYLSCOPOLAMINE BROMIDE [Concomitant]
     Active Substance: BUTYLSCOPOLAMINE BROMIDE
     Dosage: 10 MG, ONE TO BE TAKEN QDS 7 DAYS
  19. CLOPIDOGREL [Concomitant]
     Active Substance: CLOPIDOGREL BISULFATE
  20. DAPAGLIFLOZIN [Concomitant]
     Active Substance: DAPAGLIFLOZIN
     Dosage: 10 MG, ONE TO BE TAKEN DAILY 7 DAYS
  21. LANSOPRAZOLE [Concomitant]
     Active Substance: LANSOPRAZOLE
     Dosage: 15 MG, ONE TO BE TAKEN IN THE MORNING AND ONE TO BE TAKEN AT TEATIME 7 DAYS
  22. SENNA [Concomitant]
     Active Substance: SENNA LEAF\SENNOSIDES\SENNOSIDES A AND B
     Dosage: 7.5 MG, TWO TO BE TAKEN AT NIGHT 7 DAYS- NOT TAKING OFTEN
  23. VENTOLIN [Concomitant]
     Active Substance: ALBUTEROL SULFATE
     Dosage: TIME INTERVAL: AS NECESSARY: 100 MICROGRAMS / DOSE EVOHALER INHALE 2 DOSES AS NEEDED
     Route: 055
  24. CARBOCYSTEINE [Concomitant]
     Active Substance: CARBOCYSTEINE
     Dosage: TIME INTERVAL: 0.33333333 DAYS: 375 MG, TWO TO BE TAKEN THREE TIMES A DAY 7 DAYS
     Route: 065
  25. IVABRADINE [Concomitant]
     Active Substance: IVABRADINE
     Dosage: 7.5 MG, ONE TO BE TAKEN TWICE A DAY 7 DAYS
     Route: 065

REACTIONS (1)
  - Hyperkalaemia [Recovered/Resolved]
